FAERS Safety Report 4545584-8 (Version None)
Quarter: 2004Q4

REPORT INFORMATION
  Report Type: 
  Country: None (occurrence: None)
  Receive Date: 20041223
  Receipt Date: 20040907
  Transmission Date: 20050328
  Serious: No
  Sender: FDA-Public Use
  Company Number: US-JNJFOC-20040902437

PATIENT
  Age: 26 Year
  Sex: Female
  Weight: 53.0709 kg

DRUGS (3)
  1. ORTHO EVRA [Suspect]
     Indication: CONTRACEPTION
     Dosage: 1 DOSE(S), 3 IN 4 WEEK, TRANSDERMAL
     Route: 062
     Dates: start: 20040824
  2. ALLERTY SHOTS (ALLERGY MEDICATION) [Concomitant]
  3. ZYRTEC [Concomitant]

REACTIONS (4)
  - ABDOMINAL DISTENSION [None]
  - BREAST TENDERNESS [None]
  - METRORRHAGIA [None]
  - NAUSEA [None]
